FAERS Safety Report 16445206 (Version 2)
Quarter: 2020Q1

REPORT INFORMATION
  Report Type: Report from Study
  Country: US (occurrence: US)
  Receive Date: 20190618
  Receipt Date: 20200110
  Transmission Date: 20200409
  Serious: Yes (Hospitalization, Other)
  Sender: FDA-Public Use
  Company Number: PHEH2019US024868

PATIENT
  Sex: Female

DRUGS (1)
  1. NEORAL [Suspect]
     Active Substance: CYCLOSPORINE
     Indication: TRANSPLANT
     Dosage: 75 MG, QD
     Route: 048
     Dates: start: 19960227

REACTIONS (3)
  - Cerebral haemorrhage [Unknown]
  - Communication disorder [Unknown]
  - Diabetes mellitus [Unknown]
